FAERS Safety Report 10060450 (Version 4)
Quarter: 2014Q2

REPORT INFORMATION
  Report Type: Report from Study
  Country: DE (occurrence: DE)
  Receive Date: 20140404
  Receipt Date: 20140530
  Transmission Date: 20141212
  Serious: Yes (Life-Threatening, Hospitalization, Other)
  Sender: FDA-Public Use
  Company Number: DE-INCYTE CORPORATION-2014IN000804

PATIENT
  Sex: Female

DRUGS (22)
  1. INCB018424 [Suspect]
     Indication: POLYCYTHAEMIA VERA
     Dosage: 30 MG, PER DAY
     Route: 048
     Dates: start: 20121204
  2. INCB018424 [Suspect]
     Dosage: 10 MG, PER DAY
     Route: 048
     Dates: start: 20130108, end: 20130212
  3. INCB018424 [Suspect]
     Dosage: 30 MG, PER DAY
     Route: 048
     Dates: start: 20130212, end: 20130305
  4. INCB018424 [Suspect]
     Dosage: 20 MG, PER DAY
     Route: 048
     Dates: start: 20130305
  5. VERAPAMIL [Concomitant]
     Dosage: UNK MG, UNK
  6. VERAPAMIL [Concomitant]
     Dosage: 240 MG, UNK
  7. BEROTEC [Concomitant]
     Dosage: UNK
  8. BEROTEC [Concomitant]
     Dosage: 200 UG, PRN
  9. PENTASA [Concomitant]
     Dosage: 1000 MG, UNK
     Dates: end: 20140222
  10. BUDENOFALK [Concomitant]
     Dosage: UNK MG, UNK
  11. BUDENOFALK [Concomitant]
     Dosage: 6 MG, UNK
  12. IMODIUM [Concomitant]
     Dosage: UNK
  13. PANTOZOL                           /01263204/ [Concomitant]
     Dosage: UNK
  14. ALLOPURINOL [Concomitant]
     Dosage: 100 MG, PRN
  15. ALLOPURINOL [Concomitant]
     Dosage: 100 MG, PRN
  16. VOTUM                              /01635402/ [Concomitant]
     Dosage: UNK
     Dates: end: 20130108
  17. ASS [Concomitant]
     Dosage: 100 MG, UNK
     Dates: start: 20130115
  18. VITAMIN B12                        /00056201/ [Concomitant]
  19. ATMADISC [Concomitant]
  20. RAMIPRIL [Concomitant]
     Indication: MYOCARDIAL INFARCTION
     Dosage: 2.5 MG, PER DAY
     Dates: start: 20140220, end: 20140223
  21. RAMIPRIL [Concomitant]
     Indication: CARDIAC FAILURE
     Dosage: 5 MG, PER DAY
     Dates: start: 20140223, end: 20140328
  22. RAMIPRIL [Concomitant]
     Indication: PROPHYLAXIS
     Dosage: 2.5 MG, PER DAY
     Dates: start: 20140329

REACTIONS (2)
  - Myocardial infarction [Recovered/Resolved]
  - Iron deficiency anaemia [Recovered/Resolved]
